FAERS Safety Report 7894381-4 (Version None)
Quarter: 2011Q4

REPORT INFORMATION
  Report Type: 
  Country: None (occurrence: None)
  Receive Date: 20111104
  Receipt Date: 20111027
  Transmission Date: 20120403
  Serious: Yes (Other)
  Sender: FDA-Public Use
  Company Number: US-ASTRAZENECA-2010SE58344

PATIENT
  Age: 61 Year
  Sex: Male

DRUGS (2)
  1. MUCINEX [Concomitant]
  2. NEXIUM [Suspect]
     Route: 048

REACTIONS (8)
  - DYSPEPSIA [None]
  - HEADACHE [None]
  - INFLUENZA [None]
  - PULMONARY CONGESTION [None]
  - INAPPROPRIATE SCHEDULE OF DRUG ADMINISTRATION [None]
  - BRAIN NEOPLASM [None]
  - INFLUENZA LIKE ILLNESS [None]
  - TRANSIENT ISCHAEMIC ATTACK [None]
